FAERS Safety Report 5421630-4 (Version None)
Quarter: 2007Q3

REPORT INFORMATION
  Report Type: 
  Country: None (occurrence: None)
  Receive Date: 20070817
  Receipt Date: 20060822
  Transmission Date: 20080115
  Serious: Yes (Hospitalization, Other)
  Sender: FDA-Public Use
  Company Number: USBAX-L-20070015

PATIENT
  Sex: Male

DRUGS (5)
  1. NAVELBINE [Suspect]
     Indication: PROSTATE CANCER
     Dosage: 10 MG/M2 QD IV
     Route: 042
  2. FLUOROURACIL [Suspect]
     Indication: PROSTATE CANCER
     Dosage: 350 MG/M2 QD IV
     Route: 042
  3. FOLINIC ACID [Suspect]
     Indication: PROSTATE CANCER
     Dosage: 100 MG/M2 QD IV
     Route: 042
  4. DEXAMETHASONE 0.5MG TAB [Concomitant]
  5. METOCLOPRAMIDE [Concomitant]

REACTIONS (1)
  - GRANULOCYTOPENIA [None]
